FAERS Safety Report 25272034 (Version 1)
Quarter: 2025Q2

REPORT INFORMATION
  Report Type: Spontaneous
  Country: IE (occurrence: IE)
  Receive Date: 20250506
  Receipt Date: 20250506
  Transmission Date: 20250717
  Serious: Yes (Other)
  Sender: AMGEN
  Company Number: IE-AMGEN-IRLSP2025086544

PATIENT

DRUGS (1)
  1. ADALIMUMAB [Suspect]
     Active Substance: ADALIMUMAB
     Indication: Inflammatory bowel disease
     Route: 058

REACTIONS (7)
  - Neoplasm malignant [Unknown]
  - Loss of therapeutic response [Unknown]
  - Adverse event [Unknown]
  - Treatment noncompliance [Unknown]
  - Intentional product misuse [Unknown]
  - Treatment failure [Unknown]
  - Therapy non-responder [Unknown]
